FAERS Safety Report 19259075 (Version 11)
Quarter: 2022Q2

REPORT INFORMATION
  Report Type: Report from Study
  Country: US (occurrence: US)
  Receive Date: 20210514
  Receipt Date: 20220512
  Transmission Date: 20220721
  Serious: Yes (Hospitalization, Other)
  Sender: FDA-Public Use
  Company Number: US-NOVARTISPH-NVSC2021US102291

PATIENT
  Sex: Male

DRUGS (4)
  1. ENTRESTO [Suspect]
     Active Substance: SACUBITRIL\VALSARTAN
     Indication: Cardiac failure
     Dosage: 50 MG, BID
     Route: 048
  2. ENTRESTO [Suspect]
     Active Substance: SACUBITRIL\VALSARTAN
     Dosage: 50 MG, BID (24/26 MG)
     Route: 048
  3. ENTRESTO [Suspect]
     Active Substance: SACUBITRIL\VALSARTAN
     Dosage: 100 MG, BID (49/51 MG)
     Route: 048
     Dates: start: 202103
  4. LASIX [Suspect]
     Active Substance: FUROSEMIDE
     Indication: Product used for unknown indication
     Dosage: UNK, UNKNOWN
     Route: 065

REACTIONS (21)
  - Fall [Unknown]
  - Cardiac failure [Unknown]
  - Right ventricular failure [Unknown]
  - Memory impairment [Unknown]
  - Joint swelling [Unknown]
  - Weight increased [Unknown]
  - Abdominal discomfort [Unknown]
  - Weight decreased [Unknown]
  - Abdominal pain upper [Unknown]
  - Flatulence [Unknown]
  - Balance disorder [Unknown]
  - Muscle strain [Unknown]
  - Dehydration [Unknown]
  - Complication associated with device [Unknown]
  - Heart rate decreased [Unknown]
  - Dyspnoea [Unknown]
  - Burning sensation [Unknown]
  - Fatigue [Unknown]
  - Head injury [Unknown]
  - Drug hypersensitivity [Unknown]
  - Product dose omission issue [Unknown]
